FAERS Safety Report 10405086 (Version 2)
Quarter: 2014Q3

REPORT INFORMATION
  Report Type: Spontaneous
  Country: US (occurrence: US)
  Receive Date: 20140825
  Receipt Date: 20140825
  Transmission Date: 20150326
  Serious: No
  Sender: FDA-Public Use
  Company Number: US-ASTRAZENECA-2011SE77106

PATIENT
  Age: 79 Year
  Sex: Female
  Weight: 50.8 kg

DRUGS (15)
  1. LAMICTAL [Concomitant]
     Active Substance: LAMOTRIGINE
     Indication: BIPOLAR I DISORDER
  2. VITAMIN [Concomitant]
     Active Substance: VITAMINS
  3. QUETIAPINE FUMARATE. [Suspect]
     Active Substance: QUETIAPINE FUMARATE
     Indication: BIPOLAR I DISORDER
     Route: 048
  4. PROBIOTIC FLORAJEN 3 [Concomitant]
     Indication: ANTIBIOTIC PROPHYLAXIS
  5. PEPSIN [Concomitant]
     Active Substance: PEPSIN
  6. NEXIUM [Suspect]
     Active Substance: ESOMEPRAZOLE MAGNESIUM
     Indication: GASTROOESOPHAGEAL REFLUX DISEASE
     Route: 048
     Dates: start: 2011
  7. DIAZAM [Concomitant]
     Indication: HYPERTENSION
  8. ANTIBIOTIC [Concomitant]
     Active Substance: UNSPECIFIED INGREDIENT
     Indication: BLADDER DISORDER
  9. LORAZEPAM. [Concomitant]
     Active Substance: LORAZEPAM
     Indication: ANXIETY
  10. LOSARTAN [Concomitant]
     Active Substance: LOSARTAN
     Indication: HYPERTENSION
  11. VITAMIN D3 [Concomitant]
     Active Substance: CHOLECALCIFEROL
     Indication: SUPPLEMENTATION THERAPY
  12. D MANNOSE [Concomitant]
     Indication: PROPHYLAXIS
  13. PEPCID [Concomitant]
     Active Substance: FAMOTIDINE
     Indication: EAR PAIN
  14. CALCIUM CHEWABLE [Concomitant]
     Indication: SUPPLEMENTATION THERAPY
  15. HYDROCHLOROTHIAZIDE. [Concomitant]
     Active Substance: HYDROCHLOROTHIAZIDE
     Indication: DIURETIC THERAPY

REACTIONS (11)
  - Alopecia [Unknown]
  - Off label use [Unknown]
  - Arthritis [Unknown]
  - Myalgia [Unknown]
  - Pain [Unknown]
  - Gait disturbance [Unknown]
  - Diarrhoea [Unknown]
  - Weight gain poor [Unknown]
  - Lactose intolerance [Unknown]
  - Weight decreased [Recovered/Resolved]
  - Ear pain [Not Recovered/Not Resolved]

NARRATIVE: CASE EVENT DATE: 2011
